FAERS Safety Report 8359235-8 (Version None)
Quarter: 2012Q1

REPORT INFORMATION
  Report Type: 
  Country: None (occurrence: None)
  Receive Date: 20111004
  Receipt Date: 20110712
  Transmission Date: 20120608
  Serious: No
  Sender: FDA-Public Use
  Company Number: 2011IP000126

PATIENT
  Age: 64 Year
  Sex: Male

DRUGS (5)
  1. LISINOPRIL [Concomitant]
  2. DIGOXIN [Concomitant]
  3. PRADAXA [Concomitant]
  4. CINNAMON [Concomitant]
  5. BEPREVE [Suspect]
     Indication: DRY EYE
     Dosage: 1 GTT; BID; OPH
     Route: 047
     Dates: start: 20110501, end: 20110501

REACTIONS (1)
  - DRUG INEFFECTIVE FOR UNAPPROVED INDICATION [None]
